FAERS Safety Report 13530958 (Version 1)
Quarter: 2017Q2

REPORT INFORMATION
  Report Type: Spontaneous
  Country: US (occurrence: US)
  Receive Date: 20170510
  Receipt Date: 20170510
  Transmission Date: 20170830
  Serious: Yes (Hospitalization, Other)
  Sender: FDA-Public Use
  Company Number: US-ASTRAZENECA-2017SE47488

PATIENT
  Age: 72 Year
  Sex: Female
  Weight: 63.5 kg

DRUGS (1)
  1. SYMBICORT [Suspect]
     Active Substance: BUDESONIDE\FORMOTEROL FUMARATE DIHYDRATE
     Indication: DYSPNOEA
     Dosage: 160/4.5 UG, 2 PUFFS, TWO TIMES A DAY
     Route: 055

REACTIONS (16)
  - Dyspnoea [Unknown]
  - Drug dose omission [Unknown]
  - Insurance issue [Unknown]
  - Loss of consciousness [Unknown]
  - Chronic obstructive pulmonary disease [Unknown]
  - Body height decreased [Unknown]
  - Cataract [Unknown]
  - Blood iron decreased [Unknown]
  - Off label use [Unknown]
  - Swelling [Unknown]
  - Eructation [Unknown]
  - Memory impairment [Unknown]
  - Nausea [Unknown]
  - Visual impairment [Unknown]
  - Intentional product misuse [Unknown]
  - Constipation [Unknown]

NARRATIVE: CASE EVENT DATE: 2016
